FAERS Safety Report 24667737 (Version 1)
Quarter: 2024Q4

REPORT INFORMATION
  Report Type: Report from Study
  Country: US (occurrence: US)
  Receive Date: 20241127
  Receipt Date: 20241127
  Transmission Date: 20250115
  Serious: Yes (Hospitalization)
  Sender: ABBVIE
  Company Number: US-ABBVIE-6016643

PATIENT
  Age: 52 Year
  Sex: Male

DRUGS (4)
  1. SKYRIZI [Suspect]
     Active Substance: RISANKIZUMAB-RZAA
     Indication: Psoriasis
     Dosage: STRENGTH : 150MG/ML AT WEEK 0
     Route: 058
     Dates: start: 20241018
  2. SKYRIZI [Suspect]
     Active Substance: RISANKIZUMAB-RZAA
     Dosage: STRENGTH : 150MG/ML AT WEEK 0
     Route: 058
     Dates: start: 20230915, end: 20230915
  3. SKYRIZI [Suspect]
     Active Substance: RISANKIZUMAB-RZAA
     Dosage: STRENGTH : 150MG/ML AT WEEK 4
     Route: 058
     Dates: start: 20231013, end: 20231013
  4. SKYRIZI [Suspect]
     Active Substance: RISANKIZUMAB-RZAA
     Dosage: STRENGTH : 150MG/ML AT EVERY 12 WEEKS
     Route: 058
     Dates: start: 20240112, end: 20240112

REACTIONS (3)
  - Colitis [Recovered/Resolved]
  - Haematochezia [Recovered/Resolved]
  - Decreased appetite [Recovered/Resolved]

NARRATIVE: CASE EVENT DATE: 20241101
